FAERS Safety Report 8473953-2 (Version None)
Quarter: 2012Q2

REPORT INFORMATION
  Report Type: 
  Country: None (occurrence: None)
  Receive Date: 20120628
  Receipt Date: 20120622
  Transmission Date: 20120825
  Serious: Yes (Other)
  Sender: FDA-Public Use
  Company Number: US-MYLANLABS-2012S1004051

PATIENT
  Age: 79 Year
  Sex: Female

DRUGS (13)
  1. IRON SULFATETHIAMIN COMPOUND TAB [Concomitant]
  2. CLOZAPINE [Suspect]
     Indication: BEHAVIOURAL AND PSYCHIATRIC SYMPTOMS OF DEMENTIA
     Route: 048
     Dates: start: 20110928, end: 20120323
  3. CLONAZEPAM [Concomitant]
     Indication: ANXIETY
  4. SINEMET [Concomitant]
     Dosage: 25MG/100MG
  5. CYMBALTA [Concomitant]
     Indication: DEPRESSION
  6. APAP TAB [Concomitant]
  7. CLOZAPINE [Suspect]
     Route: 048
     Dates: start: 20120501
  8. PROTONIX [Concomitant]
     Indication: GASTROOESOPHAGEAL REFLUX DISEASE
  9. VITAMIN D [Concomitant]
  10. LEVOTHYROXINE [Concomitant]
     Indication: HYPOTHYROIDISM
  11. CALCIUM GLUCONATE W/VITAMIN D [Concomitant]
  12. CLOZAPINE [Suspect]
     Route: 048
     Dates: start: 20120301, end: 20120501
  13. PROCRIT /00909301/ [Concomitant]
     Route: 058

REACTIONS (1)
  - GRANULOCYTOPENIA [None]
